FAERS Safety Report 7152025-3 (Version None)
Quarter: 2010Q4

REPORT INFORMATION
  Report Type: 
  Country: None (occurrence: None)
  Receive Date: 20101123
  Receipt Date: 20101109
  Transmission Date: 20110411
  Serious: Yes (Hospitalization)
  Sender: FDA-Public Use
  Company Number: AUR-APL-2010-02791

PATIENT
  Age: 35 Year
  Sex: Female

DRUGS (4)
  1. CIPROFLAXACIN [Suspect]
     Dosage: ORAL
  2. DIURETICS [Suspect]
  3. INOTROPICS [Concomitant]
  4. B-BLOCKERS [Concomitant]

REACTIONS (3)
  - ELECTROCARDIOGRAM QT PROLONGED [None]
  - ELECTROCARDIOGRAM T WAVE ABNORMAL [None]
  - HYPOMAGNESAEMIA [None]
